FAERS Safety Report 7032978-4 (Version None)
Quarter: 2010Q4

REPORT INFORMATION
  Report Type: 
  Country: None (occurrence: None)
  Receive Date: 20101007
  Receipt Date: 20101004
  Transmission Date: 20110411
  Serious: Yes (Life-Threatening, Hospitalization)
  Sender: FDA-Public Use
  Company Number: GB-AMGEN-KDC442752

PATIENT
  Sex: Female

DRUGS (19)
  1. PANITUMUMAB [Suspect]
     Indication: OESOPHAGEAL CARCINOMA
     Dates: start: 20100707
  2. EPIRUBICIN [Suspect]
     Dates: start: 20100707
  3. CAPECITABINE [Suspect]
     Dates: start: 20100707
  4. OXALIPLATIN [Suspect]
     Dates: start: 20100707
  5. METOCLOPRAMIDE [Concomitant]
     Dates: start: 20100707
  6. DIPROBASE [Concomitant]
     Route: 061
     Dates: start: 20100728
  7. PARACETAMOL [Concomitant]
     Dates: start: 20100728
  8. LOPERAMIDE [Concomitant]
     Dates: start: 20100723
  9. UNSPECIFIED INTRAVENOUS FLUIDS [Concomitant]
     Dates: start: 20100927
  10. MAGNESIUM SULFATE [Concomitant]
     Dates: start: 20100927
  11. LEVOTHYROXINE SODIUM [Concomitant]
     Dates: start: 19830101
  12. LANSOPRAZOLE [Concomitant]
     Dates: start: 20100628
  13. CYCLIZINE [Concomitant]
     Dates: start: 20100728
  14. ENSURE [Concomitant]
     Dates: start: 20100628
  15. TPN [Concomitant]
     Dates: start: 20100723
  16. ONDANSETRON [Concomitant]
     Route: 042
     Dates: start: 20100707
  17. DEXAMETHASONE [Concomitant]
     Dates: start: 20100707
  18. FLUCONAZOLE [Concomitant]
     Dates: start: 20100723, end: 20100729
  19. SUCRALFATE [Concomitant]

REACTIONS (1)
  - PNEUMONIA ASPIRATION [None]
